FAERS Safety Report 8928098 (Version 1)
Quarter: 2012Q4

REPORT INFORMATION
  Report Type: 
  Country: CA (occurrence: CA)
  Receive Date: 20121128
  Receipt Date: 20121128
  Transmission Date: 20130627
  Serious: Yes (Other)
  Sender: FDA-Public Use
  Company Number: CA-AMGEN-CANSP2012072157

PATIENT
  Age: 51 Year
  Sex: Female
  Weight: 70.45 kg

DRUGS (5)
  1. PROLIA [Suspect]
     Indication: OSTEOPOROSIS
     Dosage: 60 mg, q6mo
     Route: 058
     Dates: start: 20111209
  2. METHOTREXATE [Concomitant]
     Dosage: UNK
  3. RITUXIMAB [Concomitant]
     Dosage: UNK
  4. FOLIC ACID [Concomitant]
     Dosage: UNK
  5. NSAID^S [Concomitant]
     Dosage: UNK

REACTIONS (1)
  - Lymphoma [Unknown]
